FAERS Safety Report 25881877 (Version 1)
Quarter: 2025Q4

REPORT INFORMATION
  Report Type: Spontaneous
  Country: CN (occurrence: CN)
  Receive Date: 20251005
  Receipt Date: 20251005
  Transmission Date: 20260118
  Serious: Yes (Hospitalization, Other)
  Sender: JOHNSON AND JOHNSON
  Company Number: CN-BAYER-2025A129291

PATIENT
  Sex: Female
  Weight: 70 kg

DRUGS (1)
  1. XARELTO [Suspect]
     Active Substance: RIVAROXABAN
     Indication: Atrial fibrillation
     Dosage: 15 MG, QD
     Route: 048
     Dates: start: 2024, end: 20250922

REACTIONS (8)
  - Upper gastrointestinal haemorrhage [Recovering/Resolving]
  - Diarrhoea haemorrhagic [Recovering/Resolving]
  - Epigastric discomfort [Unknown]
  - Abdominal pain upper [Unknown]
  - Dizziness exertional [Unknown]
  - Asthenia [Unknown]
  - Product prescribing issue [Unknown]
  - Incorrect dose administered [Unknown]

NARRATIVE: CASE EVENT DATE: 20240101
